FAERS Safety Report 19104541 (Version 3)
Quarter: 2021Q2

REPORT INFORMATION
  Report Type: Report from Study
  Country: CA (occurrence: CA)
  Receive Date: 20210407
  Receipt Date: 20210419
  Transmission Date: 20210717
  Serious: Yes (Other)
  Sender: FDA-Public Use
  Company Number: CA-FERRINGPH-2021FE02199

PATIENT
  Age: 72 Year
  Sex: Male

DRUGS (3)
  1. DEGARELIX [Suspect]
     Active Substance: DEGARELIX
     Dosage: 80 MG, MONTHLY
     Route: 065
  2. DEGARELIX [Suspect]
     Active Substance: DEGARELIX
     Indication: HORMONE-DEPENDENT PROSTATE CANCER
     Dosage: 240 MG (3 INJECTIONS OF 80 MG), ONCE/SINGLE
     Route: 058
     Dates: start: 20210329, end: 20210329
  3. ZOCOR [Concomitant]
     Active Substance: SIMVASTATIN
     Indication: BLOOD CHOLESTEROL
     Dosage: UNK
     Route: 065

REACTIONS (25)
  - Malaise [Unknown]
  - Injection site pain [Not Recovered/Not Resolved]
  - Oropharyngeal pain [Recovered/Resolved]
  - Injection site pain [Recovering/Resolving]
  - Diarrhoea [Unknown]
  - Injection site inflammation [Unknown]
  - Injection site discolouration [Not Recovered/Not Resolved]
  - Injection site induration [Unknown]
  - Wrong technique in product usage process [Recovered/Resolved]
  - Unevaluable event [Unknown]
  - Decreased appetite [Recovered/Resolved]
  - Chills [Unknown]
  - Injection site warmth [Recovering/Resolving]
  - Nausea [Unknown]
  - Off label use [Recovered/Resolved]
  - Hypokinesia [Recovered/Resolved]
  - Gait disturbance [Recovered/Resolved]
  - Injection site erythema [Recovering/Resolving]
  - Injection site mass [Not Recovered/Not Resolved]
  - Dyspnoea [Recovered/Resolved]
  - Product prescribing error [Unknown]
  - Dysphagia [Recovered/Resolved]
  - Urticaria [Unknown]
  - Blood pressure increased [Recovered/Resolved]
  - Injection site swelling [Recovering/Resolving]

NARRATIVE: CASE EVENT DATE: 2021
